FAERS Safety Report 4864643-3 (Version None)
Quarter: 2005Q4

REPORT INFORMATION
  Report Type: 
  Country: None (occurrence: None)
  Receive Date: 20051201
  Receipt Date: 20050705
  Transmission Date: 20060501
  Serious: No
  Sender: FDA-Public Use
  Company Number: 2005PV000244

PATIENT
  Age: 63 Year
  Sex: Female
  Weight: 68.0396 kg

DRUGS (13)
  1. BYETTA [Suspect]
     Dosage: 5 MCG; BID; SC
     Route: 058
  2. GLUCOPHAGE [Concomitant]
  3. ACTOS [Concomitant]
  4. PRILOSEC [Concomitant]
  5. ASPIRIN [Concomitant]
  6. ESTROGEN NOS [Concomitant]
  7. MULTIVITAMIN [Concomitant]
  8. CHROMIUM PICOLINATE [Concomitant]
  9. ZYFLAMEND [Concomitant]
  10. TYLENOL EXTENDED RELIEF [Concomitant]
  11. LISINOPRIL [Concomitant]
  12. LASIX [Concomitant]
  13. CIPRO [Concomitant]

REACTIONS (2)
  - CYSTITIS [None]
  - NAUSEA [None]
